FAERS Safety Report 23107779 (Version 1)
Quarter: 2023Q4

REPORT INFORMATION
  Report Type: Report from Study
  Country: MX (occurrence: MX)
  Receive Date: 20231026
  Receipt Date: 20231026
  Transmission Date: 20240110
  Serious: Yes (Other)
  Sender: FDA-Public Use
  Company Number: MX-BIOGEN-2023BI01232549

PATIENT
  Age: 41 Year
  Sex: Female

DRUGS (1)
  1. TYSABRI [Suspect]
     Active Substance: NATALIZUMAB
     Indication: Multiple sclerosis
     Dosage: 1 INTRAVENOUS INFUSION OF 300 MG OF TYSABRI (NATALIZUMAB) EVERY 28 DAYS
     Route: 050
     Dates: start: 202309

REACTIONS (2)
  - Angioedema [Recovered/Resolved with Sequelae]
  - Respiratory disorder [Unknown]

NARRATIVE: CASE EVENT DATE: 20230901
